FAERS Safety Report 7408073-9 (Version None)
Quarter: 2011Q2

REPORT INFORMATION
  Report Type: 
  Country: None (occurrence: None)
  Receive Date: 20110412
  Receipt Date: 20110322
  Transmission Date: 20111010
  Serious: No
  Sender: FDA-Public Use
  Company Number: US-B.I. PHARMACEUTICALS,INC./RIDGEFIELD-2011-BP-09318BP

PATIENT
  Age: 33 Year
  Sex: Male

DRUGS (2)
  1. ZANTAC [Suspect]
     Indication: DYSPEPSIA
  2. OMEPRAZOLE [Concomitant]
     Indication: DYSPEPSIA

REACTIONS (2)
  - DRUG INEFFECTIVE [None]
  - ABDOMINAL PAIN UPPER [None]
